FAERS Safety Report 5327217-6 (Version None)
Quarter: 2007Q2

REPORT INFORMATION
  Report Type: 
  Country: None (occurrence: None)
  Receive Date: 20070514
  Receipt Date: 20070514
  Transmission Date: 20071010
  Serious: Yes (Hospitalization)
  Sender: FDA-Public Use
  Company Number: None

PATIENT
  Sex: Female
  Weight: 68 kg

DRUGS (3)
  1. BEVACIZUMAB [Suspect]
     Indication: THYMOMA
     Dosage: 15 MG/KG IV Q 21 DAYS
     Dates: start: 20061030, end: 20070305
  2. ERLOTINIB [Suspect]
     Indication: THYMOMA
     Dosage: 150 MG PO DAILY
     Route: 048
     Dates: start: 20061030, end: 20070305
  3. IV HYDRATION [Concomitant]

REACTIONS (1)
  - CARDIAC TAMPONADE [None]
